FAERS Safety Report 9159279 (Version 1)
Quarter: 2013Q1

REPORT INFORMATION
  Report Type: Spontaneous
  Country: ES (occurrence: None)
  Receive Date: 20130213
  Receipt Date: 20130213
  Transmission Date: 20140127
  Serious: Yes (Hospitalization)
  Sender: FDA-Public Use
  Company Number: 2013ST000042

PATIENT
  Sex: 0

DRUGS (4)
  1. OMEPRAZOLE [Suspect]
  2. TACROLIMUS (TACROLIMUS) [Suspect]
  3. CORTICOSTEROIDS [Concomitant]
  4. MYCOPHENOLATE [Concomitant]

REACTIONS (6)
  - Drug interaction [None]
  - Renal tubular necrosis [None]
  - Nephrosclerosis [None]
  - Glomerulosclerosis [None]
  - Renal graft loss [None]
  - Complications of transplanted kidney [None]
